FAERS Safety Report 9442385 (Version 1)
Quarter: 2013Q3

REPORT INFORMATION
  Report Type: Spontaneous
  Country: US (occurrence: US)
  Receive Date: 20130806
  Receipt Date: 20130806
  Transmission Date: 20140515
  Serious: No
  Sender: FDA-Public Use
  Company Number: US-GLAXOSMITHKLINE-A1017681A

PATIENT
  Age: 66 Year
  Sex: Male

DRUGS (12)
  1. ADVAIR [Suspect]
     Indication: CHRONIC OBSTRUCTIVE PULMONARY DISEASE
     Dosage: 2PUFF THREE TIMES PER DAY
     Route: 055
     Dates: start: 2010
  2. COMBIVENT [Concomitant]
  3. RISPERIDONE [Concomitant]
  4. LAMOTRIGINE [Concomitant]
  5. CYMBALTA [Concomitant]
  6. ALPRAZOLAM [Concomitant]
  7. CYCLOBENZAPRINE [Concomitant]
  8. OMEPRAZOLE [Concomitant]
  9. VENTOLIN [Concomitant]
  10. HYDROCHLOROTHIAZIDE [Concomitant]
  11. ATENOLOL [Concomitant]
  12. FLONASE [Concomitant]

REACTIONS (4)
  - Chest discomfort [Not Recovered/Not Resolved]
  - Dyspnoea [Not Recovered/Not Resolved]
  - Drug ineffective [Unknown]
  - Product quality issue [Unknown]
